FAERS Safety Report 24298601 (Version 1)
Quarter: 2024Q3

REPORT INFORMATION
  Report Type: Spontaneous
  Country: US (occurrence: None)
  Receive Date: 20240907
  Receipt Date: 20240907
  Transmission Date: 20241016
  Serious: Yes (Disabling)
  Sender: Public
  Company Number: None

PATIENT
  Age: 42 Year
  Sex: Female
  Weight: 84.6 kg

DRUGS (1)
  1. BOTOX [Suspect]
     Active Substance: ONABOTULINUMTOXINA
     Indication: Temporomandibular pain and dysfunction syndrome
     Dates: start: 20240730

REACTIONS (9)
  - Brain fog [None]
  - Fatigue [None]
  - Depersonalisation/derealisation disorder [None]
  - Dry mouth [None]
  - Anosmia [None]
  - Vision blurred [None]
  - Muscular weakness [None]
  - Coordination abnormal [None]
  - Areflexia [None]

NARRATIVE: CASE EVENT DATE: 20240730
